FAERS Safety Report 11422944 (Version 1)
Quarter: 2015Q3

REPORT INFORMATION
  Report Type: Spontaneous
  Country: US (occurrence: None)
  Receive Date: 20150826
  Receipt Date: 20150826
  Transmission Date: 20151125
  Serious: Yes (Hospitalization)
  Sender: FDA-Public Use
  Company Number: None

PATIENT
  Age: 71 Year
  Sex: Female
  Weight: 100.2 kg

DRUGS (1)
  1. GEMCITABINE HYDROCHLORIDE. [Suspect]
     Active Substance: GEMCITABINE HYDROCHLORIDE
     Dosage: TOTAL DOSE ADMINISTERED 6560 MG
     Dates: end: 20150818

REACTIONS (5)
  - Nausea [None]
  - Neutropenia [None]
  - Vomiting [None]
  - Dehydration [None]
  - Pyrexia [None]

NARRATIVE: CASE EVENT DATE: 20150822
